FAERS Safety Report 4822941-3 (Version None)
Quarter: 2005Q4

REPORT INFORMATION
  Report Type: 
  Country: None (occurrence: None)
  Receive Date: 20051107
  Receipt Date: 20051107
  Transmission Date: 20060501
  Serious: Yes (Hospitalization, Disabling)
  Sender: FDA-Public Use
  Company Number: None

PATIENT
  Age: 31 Year
  Sex: Female
  Weight: 74.7 kg

DRUGS (6)
  1. RELPAX [Suspect]
     Indication: MIGRAINE
     Dosage: 1 OR 2 TABLETS   ONCE A WEEK  PO
     Route: 048
     Dates: start: 20050801, end: 20051011
  2. EFFEXOR [Concomitant]
  3. LUNESTA [Concomitant]
  4. PREVACID [Concomitant]
  5. DIAZEPAM [Concomitant]
  6. VICODIN [Concomitant]

REACTIONS (5)
  - ABDOMINAL PAIN [None]
  - COLITIS ISCHAEMIC [None]
  - DISEASE RECURRENCE [None]
  - NAUSEA [None]
  - VOMITING [None]
